FAERS Safety Report 6610842-X (Version None)
Quarter: 2010Q1

REPORT INFORMATION
  Report Type: 
  Country: None (occurrence: None)
  Receive Date: 20100219
  Receipt Date: 20100205
  Transmission Date: 20100710
  Serious: Yes (Death)
  Sender: FDA-Public Use
  Company Number: 1000011838

PATIENT
  Age: 40 Year
  Sex: Male

DRUGS (9)
  1. CITALOPRAM HYDROBROMIDE [Suspect]
     Indication: DEPRESSION
  2. AMITRIPTYLINE HCL [Suspect]
  3. CODEINE SULFATE [Suspect]
  4. DIAZEPAM [Suspect]
  5. HEROIN [Suspect]
  6. MORPHINE [Suspect]
  7. NORDAZEPAM [Suspect]
  8. OXYCODONE [Suspect]
  9. TEMAZEPAM [Suspect]

REACTIONS (4)
  - DRUG TOXICITY [None]
  - MALAISE [None]
  - OVERDOSE [None]
  - UNRESPONSIVE TO STIMULI [None]
